FAERS Safety Report 4810297-1 (Version None)
Quarter: 2005Q4

REPORT INFORMATION
  Report Type: 
  Country: None (occurrence: None)
  Receive Date: 20051025
  Receipt Date: 20051025
  Transmission Date: 20060501
  Serious: Yes (Other)
  Sender: FDA-Public Use
  Company Number: None

PATIENT
  Age: 72 Year
  Sex: Male
  Weight: 92.1 kg

DRUGS (16)
  1. GATIFLOXACIN [Suspect]
  2. METOPROLOL TARTRATE [Concomitant]
  3. OMEPRAZOLE [Concomitant]
  4. IBUPROFEN [Concomitant]
  5. SIMVASTATIN [Concomitant]
  6. ASPIRIN [Concomitant]
  7. LISINOPRIL [Concomitant]
  8. LINEZOLID [Concomitant]
  9. ALBUTEROL / IPRATROP [Concomitant]
  10. GABAPENTIN [Concomitant]
  11. INSULIN NPH HUMAN   NOVOLIN N [Concomitant]
  12. NITROGLYCERIN [Concomitant]
  13. PSYLLIUM SF [Concomitant]
  14. SODIUM CHLORIDE [Concomitant]
  15. INSULIN [Concomitant]
  16. ASPIRIN [Concomitant]

REACTIONS (1)
  - PHARYNGEAL OEDEMA [None]
